FAERS Safety Report 8591775-9 (Version None)
Quarter: 2012Q3

REPORT INFORMATION
  Report Type: 
  Country: None (occurrence: None)
  Receive Date: 20120814
  Receipt Date: 20120806
  Transmission Date: 20120928
  Serious: Yes (Death, Hospitalization, Other)
  Sender: FDA-Public Use
  Company Number: CO-JNJFOC-20120804249

PATIENT
  Age: 47 Year
  Sex: Female

DRUGS (4)
  1. REMICADE [Suspect]
     Route: 042
     Dates: start: 20120728
  2. REMICADE [Suspect]
     Dosage: SECOND ADMINISTRATION
     Route: 042
     Dates: start: 20120629
  3. REMICADE [Suspect]
     Indication: RHEUMATOID ARTHRITIS
     Route: 042
  4. ENALAPRIL MALEATE [Concomitant]
     Indication: HYPERTENSION
     Route: 048

REACTIONS (7)
  - CEREBROVASCULAR ACCIDENT [None]
  - HYPERTENSIVE CRISIS [None]
  - INFUSION RELATED REACTION [None]
  - ABDOMINAL PAIN UPPER [None]
  - INFECTION [None]
  - CHEST PAIN [None]
  - NAUSEA [None]
